FAERS Safety Report 6515949-3 (Version None)
Quarter: 2009Q4

REPORT INFORMATION
  Report Type: 
  Country: None (occurrence: None)
  Receive Date: 20091223
  Receipt Date: 20090212
  Transmission Date: 20100525
  Serious: Yes (Hospitalization, Other)
  Sender: FDA-Public Use
  Company Number: US-ABBOTT-09P-163-0557227-00

PATIENT
  Sex: Male
  Weight: 86.26 kg

DRUGS (1)
  1. LUPRON DEPOT [Suspect]
     Indication: PROSTATE CANCER
     Route: 030
     Dates: start: 20070928, end: 20090201

REACTIONS (3)
  - INJECTION SITE ABSCESS [None]
  - INJECTION SITE NODULE [None]
  - INJECTION SITE PAIN [None]
